FAERS Safety Report 20805187 (Version 55)
Quarter: 2025Q4

REPORT INFORMATION
  Report Type: Report from Study
  Country: JP (occurrence: JP)
  Receive Date: 20220509
  Receipt Date: 20251223
  Transmission Date: 20260119
  Serious: Yes (Hospitalization, Other)
  Sender: TAKEDA
  Company Number: JP-TAKEDA-2022TJP045629

PATIENT
  Age: 58 Year
  Sex: Female

DRUGS (22)
  1. ICATIBANT [Suspect]
     Active Substance: ICATIBANT ACETATE
     Indication: Hereditary angioedema
     Dosage: 30 MILLIGRAM
     Dates: start: 20220418, end: 20220418
  2. ICATIBANT [Suspect]
     Active Substance: ICATIBANT ACETATE
     Dosage: 30 MILLIGRAM
     Dates: start: 20230512, end: 20230512
  3. ICATIBANT [Suspect]
     Active Substance: ICATIBANT ACETATE
     Dosage: 30 MILLIGRAM
     Dates: start: 20230613, end: 20230613
  4. ICATIBANT [Suspect]
     Active Substance: ICATIBANT ACETATE
     Dosage: 30 MILLIGRAM
     Dates: start: 20231103, end: 20231103
  5. ICATIBANT [Suspect]
     Active Substance: ICATIBANT ACETATE
     Dosage: 30 MILLIGRAM
     Dates: start: 20231104, end: 20231104
  6. ICATIBANT [Suspect]
     Active Substance: ICATIBANT ACETATE
     Dosage: 30 MILLIGRAM
     Dates: start: 20240108, end: 20240108
  7. ICATIBANT [Suspect]
     Active Substance: ICATIBANT ACETATE
     Dosage: 30 MILLIGRAM
  8. ICATIBANT [Suspect]
     Active Substance: ICATIBANT ACETATE
     Dosage: 30 MILLIGRAM
  9. ICATIBANT [Suspect]
     Active Substance: ICATIBANT ACETATE
     Dosage: UNK
  10. TAKHZYRO [Suspect]
     Active Substance: LANADELUMAB-FLYO
     Indication: Hereditary angioedema
     Dosage: 300 MILLIGRAM, Q2WEEKS
     Dates: start: 20220726, end: 20220726
  11. TAKHZYRO [Suspect]
     Active Substance: LANADELUMAB-FLYO
     Dosage: 300 MILLIGRAM, Q2WEEKS
     Dates: start: 20220809
  12. TAKHZYRO [Suspect]
     Active Substance: LANADELUMAB-FLYO
     Dosage: 300 MILLIGRAM, Q2WEEKS
     Dates: start: 20220920
  13. TAKHZYRO [Suspect]
     Active Substance: LANADELUMAB-FLYO
     Dosage: 300 MILLIGRAM, Q2WEEKS
     Dates: start: 20250415
  14. PREDONINE [Concomitant]
     Active Substance: PREDNISOLONE
     Indication: Urticaria
     Dosage: 5 MILLIGRAM/DAY
  15. PREDONINE [Concomitant]
     Active Substance: PREDNISOLONE
     Indication: Hereditary angioedema
     Dosage: 4 MILLIGRAM
  16. PREDONINE [Concomitant]
     Active Substance: PREDNISOLONE
     Dosage: 3 MILLIGRAM
  17. DIETARY SUPPLEMENT\PROBIOTICS [Concomitant]
     Active Substance: DIETARY SUPPLEMENT\PROBIOTICS NOS
     Indication: Abdominal symptom
     Dosage: UNK
  18. CORTRIL [Concomitant]
     Active Substance: HYDROCORTISONE
     Dosage: 1.5 DOSAGE FORM
  19. REBAMIPIDE [Concomitant]
     Active Substance: REBAMIPIDE
     Dosage: UNK
  20. BEPOTASTINE BESYLATE [Concomitant]
     Active Substance: BEPOTASTINE BESYLATE
     Dosage: UNK
  21. ALFACALCIDOL [Concomitant]
     Active Substance: ALFACALCIDOL
     Dosage: UNK
  22. PREDNISOLONE [Concomitant]
     Active Substance: PREDNISOLONE
     Dosage: UNK

REACTIONS (100)
  - Tooth injury [Unknown]
  - Ascites [Unknown]
  - Post procedural haemorrhage [Unknown]
  - Coronavirus infection [Recovering/Resolving]
  - Tooth injury [Unknown]
  - Pyelonephritis [Recovering/Resolving]
  - Pyelonephritis [Unknown]
  - Nasopharyngitis [Unknown]
  - Coronavirus infection [Unknown]
  - Coronavirus pneumonia [Recovering/Resolving]
  - Endoscopy upper gastrointestinal tract [Unknown]
  - Contusion [Unknown]
  - Hereditary angioedema [Unknown]
  - Discouragement [Unknown]
  - Heat exhaustion [Unknown]
  - Physical deconditioning [Unknown]
  - Malaise [Unknown]
  - Osteoporosis [Unknown]
  - Teeth brittle [Unknown]
  - Psychiatric symptom [Unknown]
  - Procedural pain [Unknown]
  - Myalgia [Unknown]
  - Heat exhaustion [Unknown]
  - Decreased appetite [Unknown]
  - Stress [Unknown]
  - Injection site discolouration [Unknown]
  - Miliaria [Unknown]
  - Purpura [Unknown]
  - Administration site extravasation [Unknown]
  - Joint effusion [Unknown]
  - Hypoaesthesia [Unknown]
  - Arthralgia [Unknown]
  - Osteoporosis [Unknown]
  - Injection site pain [Unknown]
  - Injection site discolouration [Recovered/Resolved]
  - Injection site bruising [Recovered/Resolved]
  - Diarrhoea [Unknown]
  - Cold sweat [Unknown]
  - Diarrhoea [Unknown]
  - Diarrhoea [Recovered/Resolved]
  - Affect lability [Unknown]
  - Postoperative adhesion [Unknown]
  - Gastric polyps [Unknown]
  - Injection site pain [Unknown]
  - Myalgia [Unknown]
  - Injection site pain [Unknown]
  - Injection site pain [Unknown]
  - Injection site bruising [Unknown]
  - Injection site pain [Unknown]
  - Contusion [Unknown]
  - Injection site pain [Unknown]
  - Injection site pain [Unknown]
  - Myalgia [Unknown]
  - Physical deconditioning [Unknown]
  - Dyshidrotic eczema [Unknown]
  - Musculoskeletal stiffness [Unknown]
  - Arthralgia [Unknown]
  - Joint noise [Unknown]
  - Bronchitis [Recovering/Resolving]
  - Injection site pain [Unknown]
  - Taste disorder [Recovering/Resolving]
  - Pain [Recovering/Resolving]
  - Pain [Unknown]
  - Dry skin [Unknown]
  - Injection site pain [Unknown]
  - Hyperkeratosis [Unknown]
  - Feeling abnormal [Unknown]
  - Rhinitis allergic [Unknown]
  - Physical deconditioning [Unknown]
  - Malaise [Unknown]
  - Helicobacter infection [Unknown]
  - Helicobacter infection [Unknown]
  - Oral contusion [Unknown]
  - Flushing [Unknown]
  - Constipation [Unknown]
  - Diarrhoea [Unknown]
  - Diarrhoea [Unknown]
  - Abdominal pain [Unknown]
  - Abdominal discomfort [Unknown]
  - Physical deconditioning [Unknown]
  - Diarrhoea [Unknown]
  - Hereditary angioedema [Unknown]
  - Dry eye [Unknown]
  - Injury corneal [Unknown]
  - Astigmatism [Unknown]
  - Drug hypersensitivity [Unknown]
  - Injection site pain [Unknown]
  - Injection site erythema [Unknown]
  - Injection site swelling [Unknown]
  - Nausea [Unknown]
  - Injection site haemorrhage [Unknown]
  - Injection site haemorrhage [Unknown]
  - Pruritus [Unknown]
  - Eye pruritus [Unknown]
  - Injection site pain [Unknown]
  - Headache [Unknown]
  - Malaise [Unknown]
  - Injection site pain [Unknown]
  - Injection site swelling [Unknown]
  - Injection site bruising [Unknown]

NARRATIVE: CASE EVENT DATE: 20220401
